FAERS Safety Report 6381187-0 (Version None)
Quarter: 2009Q3

REPORT INFORMATION
  Report Type: 
  Country: None (occurrence: None)
  Receive Date: 20090929
  Receipt Date: 20090903
  Transmission Date: 20100115
  Serious: No
  Sender: FDA-Public Use
  Company Number: US-TYCO HEALTHCARE/MALLINCKRODT-T200901635

PATIENT
  Sex: Female

DRUGS (11)
  1. TECHNETIUM TC 99M SESTAMIBI [Suspect]
     Indication: CARDIAC STRESS TEST
     Dosage: UNK
     Route: 042
     Dates: start: 20090903, end: 20090903
  2. TECHNETIUM TC 99M SESTAMIBI [Suspect]
     Dosage: UNK
     Route: 042
     Dates: start: 20090903, end: 20090903
  3. ULTRA-TECHNEKOW [Suspect]
     Indication: CARDIAC STRESS TEST
     Dosage: 11.8 MCI, SINGLE (RESTING)
     Route: 042
     Dates: start: 20090903, end: 20090903
  4. ULTRA-TECHNEKOW [Suspect]
     Dosage: 35 MCI, SINGLE (STRESS)
     Route: 042
     Dates: start: 20090903, end: 20090903
  5. ALBUTEROL [Concomitant]
  6. FLUOXETINE [Concomitant]
  7. ADVAIR DISKUS 100/50 [Concomitant]
  8. SINGULAIR [Concomitant]
  9. FLUTICASONE [Concomitant]
  10. TRAZODONE [Concomitant]
  11. OPTIVAR [Concomitant]
     Route: 047

REACTIONS (2)
  - HEADACHE [None]
  - RASH [None]
